FAERS Safety Report 25626390 (Version 2)
Quarter: 2025Q4

REPORT INFORMATION
  Report Type: Spontaneous
  Country: EU (occurrence: EU)
  Receive Date: 20250731
  Receipt Date: 20251030
  Transmission Date: 20260118
  Serious: Yes (Other)
  Sender: RANBAXY
  Company Number: EU-CADRBFARM-2025335595

PATIENT
  Age: 42 Year
  Sex: Male
  Weight: 106 kg

DRUGS (1)
  1. VENLAFAXINE [Suspect]
     Active Substance: VENLAFAXINE HYDROCHLORIDE
     Indication: Depression
     Dosage: 125
     Route: 048
     Dates: start: 20240410, end: 20250410

REACTIONS (8)
  - Angina pectoris [Unknown]
  - Paraesthesia [Unknown]
  - Chest discomfort [Unknown]
  - Bone pain [Unknown]
  - Asthenia [Unknown]
  - Hypopnoea [Unknown]
  - Arthralgia [Unknown]
  - Coordination abnormal [Unknown]

NARRATIVE: CASE EVENT DATE: 20240911
